FAERS Safety Report 5661222-5 (Version None)
Quarter: 2008Q1

REPORT INFORMATION
  Report Type: 
  Country: None (occurrence: None)
  Receive Date: 20080312
  Receipt Date: 20080303
  Transmission Date: 20080703
  Serious: Yes (Other)
  Sender: FDA-Public Use
  Company Number: A0709087A

PATIENT
  Age: 30 Year
  Sex: Female
  Weight: 54.5 kg

DRUGS (3)
  1. LAMICTAL [Suspect]
     Indication: BIPOLAR DISORDER
     Dosage: 50MG PER DAY
     Route: 048
     Dates: start: 20071001, end: 20071218
  2. SEROQUEL [Concomitant]
     Dosage: 1000MG PER DAY
     Route: 048
  3. LITHIUM CARBONATE [Concomitant]
     Dosage: 600MG PER DAY
     Route: 048

REACTIONS (1)
  - DERMATITIS BULLOUS [None]
